FAERS Safety Report 4925052-1 (Version None)
Quarter: 2006Q1

REPORT INFORMATION
  Report Type: 
  Country: None (occurrence: None)
  Receive Date: 20060222
  Receipt Date: 20060209
  Transmission Date: 20060701
  Serious: Yes (Hospitalization)
  Sender: FDA-Public Use
  Company Number: 2006SP000725

PATIENT
  Age: 50 Year
  Sex: Male

DRUGS (8)
  1. LUNESTA [Suspect]
     Indication: INSOMNIA
     Dosage: 3 MG; 1X; ORAL
     Route: 048
     Dates: start: 20050907, end: 20050907
  2. LUNESTA [Suspect]
     Indication: INSOMNIA
     Dosage: 3 MG; 1X; ORAL
     Route: 048
     Dates: start: 20050909, end: 20050909
  3. AMBIEN [Concomitant]
  4. FLEXERIL [Concomitant]
  5. ZANTAC [Concomitant]
  6. VALIUM [Concomitant]
  7. CELEBREX [Concomitant]
  8. MORPHINE [Concomitant]

REACTIONS (11)
  - DIFFICULTY IN WALKING [None]
  - DYSGEUSIA [None]
  - RASH ERYTHEMATOUS [None]
  - RASH PRURITIC [None]
  - REFUSAL OF TREATMENT BY PATIENT [None]
  - SCAR [None]
  - SCRATCH [None]
  - STAPHYLOCOCCAL INFECTION [None]
  - THERAPY NON-RESPONDER [None]
  - TREATMENT NONCOMPLIANCE [None]
  - ULCER [None]
